FAERS Safety Report 19704236 (Version 1)
Quarter: 2021Q3

REPORT INFORMATION
  Report Type: Spontaneous
  Country: TW (occurrence: TW)
  Receive Date: 20210816
  Receipt Date: 20210816
  Transmission Date: 20211014
  Serious: Yes (Other)
  Sender: FDA-Public Use
  Company Number: TW-GRANULES-TW-2021GRALIT00442

PATIENT
  Age: 22 Year
  Sex: Male

DRUGS (7)
  1. ETANERCEPT [Interacting]
     Active Substance: ETANERCEPT
     Indication: TOXIC EPIDERMAL NECROLYSIS
     Route: 065
  2. ISOTRETINOIN. [Interacting]
     Active Substance: ISOTRETINOIN
     Indication: SEBACEOUS GLAND DISORDER
     Route: 065
  3. TENOXICAM [Suspect]
     Active Substance: TENOXICAM
     Indication: PRODUCT USED FOR UNKNOWN INDICATION
     Route: 065
  4. IMMUNOGLOBULIN I.V [Interacting]
     Active Substance: HUMAN IMMUNOGLOBULIN G
     Indication: TOXIC EPIDERMAL NECROLYSIS
     Route: 042
  5. ISOTRETINOIN. [Interacting]
     Active Substance: ISOTRETINOIN
     Route: 065
  6. CORTICOSTEROID NOS [Interacting]
     Active Substance: CORTICOSTEROID NOS
     Indication: TOXIC EPIDERMAL NECROLYSIS
  7. IBUPROFEN. [Suspect]
     Active Substance: IBUPROFEN
     Indication: PRODUCT USED FOR UNKNOWN INDICATION
     Route: 065

REACTIONS (2)
  - Toxic epidermal necrolysis [Recovered/Resolved with Sequelae]
  - Sebaceous gland disorder [Recovering/Resolving]
